FAERS Safety Report 23381220 (Version 5)
Quarter: 2025Q1

REPORT INFORMATION
  Report Type: Report from Study
  Country: CZ (occurrence: CZ)
  Receive Date: 20240109
  Receipt Date: 20250326
  Transmission Date: 20250408
  Serious: Yes (Hospitalization, Other)
  Sender: TAKEDA
  Company Number: CZ-TAKEDA-2024TUS000787

PATIENT
  Age: 41 Year
  Sex: Male
  Weight: 85.3 kg

DRUGS (12)
  1. TEDUGLUTIDE [Suspect]
     Active Substance: TEDUGLUTIDE
     Indication: Short-bowel syndrome
     Dosage: 4 MILLIGRAM, QD
     Dates: start: 20200520, end: 20201218
  2. TEDUGLUTIDE [Suspect]
     Active Substance: TEDUGLUTIDE
     Dosage: 4 MILLIGRAM, QD
     Dates: start: 20210127, end: 20240126
  3. TEDUGLUTIDE [Suspect]
     Active Substance: TEDUGLUTIDE
  4. TEDUGLUTIDE [Suspect]
     Active Substance: TEDUGLUTIDE
  5. MAGNESIUM LACTATE [Concomitant]
     Active Substance: MAGNESIUM LACTATE
     Indication: Mineral supplementation
     Dosage: 0.5 GRAM, BID
     Dates: start: 20230112
  6. Calcii carbonas [Concomitant]
     Indication: Short-bowel syndrome
     Dosage: 0.5 GRAM, BID
     Dates: start: 2015
  7. OMEPRAZOLE [Concomitant]
     Active Substance: OMEPRAZOLE
     Indication: Short-bowel syndrome
     Dosage: 20 MILLIGRAM, QD
     Dates: start: 2015
  8. URSODIOL [Concomitant]
     Active Substance: URSODIOL
     Indication: Liver disorder
     Dosage: 250 MILLIGRAM, BID
     Dates: start: 201705
  9. CHOLECALCIFEROL [Concomitant]
     Active Substance: CHOLECALCIFEROL
     Indication: Vitamin D deficiency
     Dosage: 7.5 MILLIGRAM, MONTHLY
  10. HUMIRA [Concomitant]
     Active Substance: ADALIMUMAB
     Indication: Crohn^s disease
     Dosage: 80 MILLIGRAM, Q2WEEKS
     Dates: start: 20140602
  11. Vigantol [Concomitant]
     Indication: Vitamin D deficiency
     Dosage: 10 GTT DROPS, 3/WEEK
     Dates: start: 20211123
  12. VITAMIN B12 [Concomitant]
     Active Substance: CYANOCOBALAMIN
     Indication: Vitamin supplementation
     Dosage: 1 MILLIGRAM, MONTHLY
     Dates: start: 202112

REACTIONS (2)
  - Hypokalaemia [Recovered/Resolved]
  - Device related thrombosis [Recovered/Resolved]

NARRATIVE: CASE EVENT DATE: 20231030
